FAERS Safety Report 23357062 (Version 1)
Quarter: 2024Q1

REPORT INFORMATION
  Report Type: Spontaneous
  Country: CN (occurrence: CN)
  Receive Date: 20240102
  Receipt Date: 20240102
  Transmission Date: 20240410
  Serious: Yes (Hospitalization)
  Sender: FDA-Public Use
  Company Number: CN-Merck Healthcare KGaA-2023496981

PATIENT
  Age: 19 Year
  Sex: Female
  Weight: 35 kg

DRUGS (10)
  1. ERBITUX [Suspect]
     Active Substance: CETUXIMAB
     Indication: Colon cancer
     Dosage: 600 MG, UNKNOWN
     Route: 041
     Dates: start: 20231122, end: 20231122
  2. FLUOROURACIL [Suspect]
     Active Substance: FLUOROURACIL
     Indication: Colon cancer
     Dosage: 3 G, DAILY
     Route: 042
     Dates: start: 20231122, end: 20231122
  3. FLUOROURACIL [Suspect]
     Active Substance: FLUOROURACIL
     Dosage: 0.500 G, DAILY
     Route: 065
     Dates: start: 20231122, end: 20231122
  4. LEUCOVORIN CALCIUM [Suspect]
     Active Substance: LEUCOVORIN CALCIUM
     Indication: Colon cancer
     Dosage: 0.5 G, DAILY
     Route: 042
     Dates: start: 20231122, end: 20231122
  5. IRINOTECAN HYDROCHLORIDE [Suspect]
     Active Substance: IRINOTECAN HYDROCHLORIDE
     Indication: Colon cancer
     Dosage: 230 MG, DAILY
     Route: 041
     Dates: start: 20231122, end: 20231122
  6. SODIUM CHLORIDE [Concomitant]
     Active Substance: SODIUM CHLORIDE
     Indication: Colon cancer
     Dosage: 20 ML, DAILY
     Route: 042
     Dates: start: 20231122, end: 20231122
  7. SODIUM CHLORIDE [Concomitant]
     Active Substance: SODIUM CHLORIDE
     Dosage: 64 ML, DAILY
     Route: 065
     Dates: start: 20231122, end: 20231122
  8. SODIUM CHLORIDE [Concomitant]
     Active Substance: SODIUM CHLORIDE
     Dosage: 130 ML, DAILY
     Route: 041
     Dates: start: 20231122, end: 20231122
  9. SODIUM CHLORIDE [Concomitant]
     Active Substance: SODIUM CHLORIDE
     Dosage: 250 ML, DAILY
     Route: 041
     Dates: start: 20231122, end: 20231122
  10. SODIUM CHLORIDE [Concomitant]
     Active Substance: SODIUM CHLORIDE
     Dosage: 20 ML, DAILY
     Route: 065
     Dates: start: 20231122, end: 20231122

REACTIONS (1)
  - Myelosuppression [Recovering/Resolving]

NARRATIVE: CASE EVENT DATE: 20231206
